FAERS Safety Report 6554688-X (Version None)
Quarter: 2010Q1

REPORT INFORMATION
  Report Type: 
  Country: None (occurrence: None)
  Receive Date: 20100127
  Receipt Date: 20100122
  Transmission Date: 20100710
  Serious: Yes (Death, Life-Threatening, Hospitalization)
  Sender: FDA-Public Use
  Company Number: FR-WYE-G05407610

PATIENT
  Sex: Male

DRUGS (4)
  1. GEMTUZUMAB OZOGAMICIN [Suspect]
     Indication: ACUTE MYELOID LEUKAEMIA RECURRENT
     Dosage: 12 MG TOTAL DAILY
     Route: 042
     Dates: start: 20081128, end: 20081128
  2. ZAVEDOS [Suspect]
     Indication: ACUTE MYELOID LEUKAEMIA RECURRENT
     Dosage: 24 MG TOTAL DAILY
     Route: 042
     Dates: start: 20081128, end: 20081130
  3. RASBURICASE [Concomitant]
     Indication: ACUTE MYELOID LEUKAEMIA RECURRENT
     Dosage: 17.4 MG TOTAL DAILY
     Route: 042
     Dates: start: 20081128, end: 20081129
  4. ARACYTINE [Suspect]
     Indication: ACUTE MYELOID LEUKAEMIA RECURRENT
     Dosage: 4 G TOTAL DAILY
     Route: 042
     Dates: start: 20081128, end: 20081202

REACTIONS (6)
  - ASCITES [None]
  - PANCYTOPENIA [None]
  - PLEURAL EFFUSION [None]
  - SHOCK HAEMORRHAGIC [None]
  - STREPTOCOCCAL SEPSIS [None]
  - VENOOCCLUSIVE LIVER DISEASE [None]
